FAERS Safety Report 25705139 (Version 3)
Quarter: 2025Q3

REPORT INFORMATION
  Report Type: Report from Study
  Country: US (occurrence: US)
  Receive Date: 20250820
  Receipt Date: 20250926
  Transmission Date: 20251021
  Serious: Yes (Other)
  Sender: BAYER HEALTHCARE PHARMACEUTICALS INC.
  Company Number: US-BAYER-2025A106824

PATIENT
  Age: 66 Year
  Sex: Male

DRUGS (22)
  1. NUBEQA [Suspect]
     Active Substance: DAROLUTAMIDE
     Indication: Hormone-dependent prostate cancer
     Dosage: 600 MG, BID
     Route: 048
     Dates: start: 20250521
  2. NUBEQA [Suspect]
     Active Substance: DAROLUTAMIDE
     Indication: Agranulocytosis
  3. NUBEQA [Suspect]
     Active Substance: DAROLUTAMIDE
     Indication: Metastases to bone
  4. NUBEQA [Suspect]
     Active Substance: DAROLUTAMIDE
     Indication: Prostate cancer
  5. NUBEQA [Suspect]
     Active Substance: DAROLUTAMIDE
     Indication: Iron deficiency anaemia
  6. CYCLOBENZAPRINE [Concomitant]
     Active Substance: CYCLOBENZAPRINE
  7. DEXAMETHASONE [Concomitant]
     Active Substance: DEXAMETHASONE
  8. IBUPROFEN [Concomitant]
     Active Substance: IBUPROFEN
  9. OXYCODONE AND ACETAMINOPHEN [Concomitant]
     Active Substance: ACETAMINOPHEN\OXYCODONE HYDROCHLORIDE
  10. SODIUM CHLORIDE [Concomitant]
     Active Substance: SODIUM CHLORIDE
  11. TAMSULOSIN [Concomitant]
     Active Substance: TAMSULOSIN
  12. ZOFRAN [Concomitant]
     Active Substance: ONDANSETRON HYDROCHLORIDE
  13. CALCIUM\CHOLECALCIFEROL [Concomitant]
     Active Substance: CALCIUM\CHOLECALCIFEROL
  14. FILGRASTIM [Concomitant]
     Active Substance: FILGRASTIM
  15. HEPARIN LOCK FLUSH [Concomitant]
     Active Substance: HEPARIN SODIUM
  16. GRANISETRON [Concomitant]
     Active Substance: GRANISETRON
  17. DEXAMETHASONE SODIUM PHOSPHATE [Concomitant]
     Active Substance: DEXAMETHASONE SODIUM PHOSPHATE
  18. Gebauer^s Pain Ease [Concomitant]
  19. Docetaxel;Prednisolone [Concomitant]
     Dates: start: 20250509
  20. MS CONTIN [Concomitant]
     Active Substance: MORPHINE SULFATE
     Dosage: 30 MG, TID
  21. FIRMAGON [Concomitant]
     Active Substance: DEGARELIX ACETATE
  22. DENOSUMAB [Concomitant]
     Active Substance: DENOSUMAB

REACTIONS (29)
  - Dizziness [None]
  - Malaise [Not Recovered/Not Resolved]
  - Prostate cancer [None]
  - Leukopenia [Recovered/Resolved]
  - Metastases to lymph nodes [None]
  - Metastases to bone [None]
  - Pathological fracture [Unknown]
  - Chest pain [Unknown]
  - Onychalgia [Unknown]
  - Decreased appetite [Unknown]
  - Fatigue [Recovering/Resolving]
  - Pruritus [Unknown]
  - Hypersomnia [Unknown]
  - Erythema [Not Recovered/Not Resolved]
  - Paronychia [None]
  - Peripheral swelling [None]
  - Haemoglobin decreased [None]
  - Blood alkaline phosphatase increased [None]
  - Paronychia [None]
  - Hepatic cyst [None]
  - Bladder dilatation [None]
  - Prostatomegaly [None]
  - Prostatic mass [None]
  - Lymphadenopathy [None]
  - Thyroid mass [None]
  - Onychomadesis [Unknown]
  - Sacral pain [None]
  - Dry skin [Unknown]
  - Alopecia [Unknown]

NARRATIVE: CASE EVENT DATE: 20250101
